FAERS Safety Report 6702495-7 (Version None)
Quarter: 2010Q2

REPORT INFORMATION
  Report Type: 
  Country: None (occurrence: None)
  Receive Date: 20100429
  Receipt Date: 20100422
  Transmission Date: 20101027
  Serious: Yes (Other)
  Sender: FDA-Public Use
  Company Number: B0650413A

PATIENT
  Sex: Female

DRUGS (2)
  1. TYVERB [Suspect]
     Indication: DRUG USE FOR UNKNOWN INDICATION
     Dosage: 1250MG PER DAY
     Route: 065
     Dates: start: 20100114
  2. CAPECITABINE [Concomitant]

REACTIONS (1)
  - SKIN TOXICITY [None]
